FAERS Safety Report 8295212-3 (Version None)
Quarter: 2012Q2

REPORT INFORMATION
  Report Type: 
  Country: None (occurrence: None)
  Receive Date: 20120418
  Receipt Date: 20120410
  Transmission Date: 20120825
  Serious: Yes (Hospitalization)
  Sender: FDA-Public Use
  Company Number: FR-BAXTER-2012BAX002576

PATIENT
  Age: 79 Year
  Sex: Female

DRUGS (8)
  1. CORDARONE [Concomitant]
     Dosage: 1 TABLET
     Route: 048
     Dates: start: 20120320, end: 20120321
  2. NIVESTIM [Concomitant]
     Dosage: 1
     Route: 058
     Dates: start: 20120319, end: 20120326
  3. MABTHERA [Suspect]
     Indication: B-CELL LYMPHOMA
     Route: 042
     Dates: start: 20120313, end: 20120313
  4. CYCLOPHOSPHAMIDE [Suspect]
     Indication: B-CELL LYMPHOMA
     Route: 042
     Dates: start: 20120313, end: 20120313
  5. VINCRISTINE [Suspect]
     Indication: B-CELL LYMPHOMA
     Route: 042
     Dates: start: 20120313, end: 20120313
  6. LOVENOX [Concomitant]
     Indication: ATRIAL FIBRILLATION
     Dosage: 0.5
     Route: 058
     Dates: start: 20120321, end: 20120323
  7. DIGOXIN [Concomitant]
     Dosage: 1 TABLET
     Route: 048
     Dates: start: 20120322, end: 20120322
  8. PREVISCAN                          /00789001/ [Concomitant]
     Indication: ATRIAL FIBRILLATION
     Dosage: 1/2 TABLET
     Route: 048
     Dates: start: 20120322, end: 20120323

REACTIONS (2)
  - THROMBOCYTOPENIA [None]
  - NEUTROPENIA [None]
